FAERS Safety Report 4357807-9 (Version None)
Quarter: 2004Q2

REPORT INFORMATION
  Report Type: 
  Country: None (occurrence: None)
  Receive Date: 20040512
  Receipt Date: 20040427
  Transmission Date: 20050107
  Serious: Yes (Hospitalization)
  Sender: FDA-Public Use
  Company Number: ZICO001050

PATIENT
  Age: 59 Year
  Sex: Male
  Weight: 114.3065 kg

DRUGS (5)
  1. ZICONOTIDE [Suspect]
     Indication: PAIN
     Dosage: 0.100 MCG/HR INTRATHECAL
     Route: 037
     Dates: start: 20040407, end: 20040408
  2. OXYCONTIN [Concomitant]
  3. ROXICODONE [Concomitant]
  4. POTASSIUM CHLORIDE [Concomitant]
  5. WARFARIN SODIUM [Concomitant]

REACTIONS (9)
  - ALLODYNIA [None]
  - ASTHENIA [None]
  - HEADACHE [None]
  - HYPERREFLEXIA [None]
  - MUSCULOSKELETAL STIFFNESS [None]
  - NECK PAIN [None]
  - PAIN IN EXTREMITY [None]
  - PARAESTHESIA [None]
  - SOMNOLENCE [None]
